FAERS Safety Report 11006075 (Version 2)
Quarter: 2015Q2

REPORT INFORMATION
  Report Type: Report from Study
  Country: BR (occurrence: BR)
  Receive Date: 20150409
  Receipt Date: 20150429
  Transmission Date: 20150821
  Serious: Yes (Other)
  Sender: FDA-Public Use
  Company Number: PHHY2015BR040718

PATIENT
  Sex: Female
  Weight: 86 kg

DRUGS (4)
  1. EXELON PATCH [Suspect]
     Active Substance: RIVASTIGMINE
     Dosage: PATCH 10 CM2 (1 ADHESIVE) 2 DAYS AFTER EXELON PATCH 5 CM2
     Route: 062
  2. EXELON PATCH [Suspect]
     Active Substance: RIVASTIGMINE
     Dosage: PATCH 5CM2\9MG, EACH 3 DAYS
     Route: 062
  3. EXELON PATCH [Suspect]
     Active Substance: RIVASTIGMINE
     Indication: DEMENTIA ALZHEIMER^S TYPE
     Dosage: PATCH 5CM2\9MG, FOR A MONTH DAILY
     Route: 062
     Dates: start: 201501
  4. EXELON PATCH [Suspect]
     Active Substance: RIVASTIGMINE
     Dosage: PATCH 10 CM2 (1 ADHESIVE DAILY)
     Route: 062

REACTIONS (5)
  - Gait disturbance [Not Recovered/Not Resolved]
  - Drug prescribing error [Unknown]
  - Nervousness [Not Recovered/Not Resolved]
  - Delirium [Not Recovered/Not Resolved]
  - Decreased interest [Not Recovered/Not Resolved]
